FAERS Safety Report 5711111-2 (Version None)
Quarter: 2008Q2

REPORT INFORMATION
  Report Type: 
  Country: None (occurrence: None)
  Receive Date: 20080415
  Receipt Date: 20080404
  Transmission Date: 20081010
  Serious: Yes (Hospitalization)
  Sender: FDA-Public Use
  Company Number: GXKR2008GB03334

PATIENT
  Sex: Female
  Weight: 132 kg

DRUGS (8)
  1. CLINDAMYCIN (NGX)(CLINDAMYCIN) UNKNOWN [Suspect]
     Indication: SKIN DISORDER
     Dosage: 300 MG, BID, ORAL
     Route: 048
     Dates: end: 20080301
  2. RIFAMPICIN [Suspect]
     Indication: SKIN DISORDER
     Dosage: 300 MG, BID, ORAL
     Route: 048
     Dates: end: 20080301
  3. SEROQUEL [Suspect]
     Indication: PSYCHOTIC DISORDER
     Dosage: 1250 MG, QD, ORAL
     Route: 048
  4. FLUOXETINE [Concomitant]
  5. HALOPERIDOL [Concomitant]
  6. ORPHENADRINE CITRATE [Concomitant]
  7. PROZAC [Concomitant]
  8. SENNA (SENNA, SENNA ALEXANDRINA) [Concomitant]

REACTIONS (3)
  - ANTIPSYCHOTIC DRUG LEVEL BELOW THERAPEUTIC [None]
  - DRUG INTERACTION [None]
  - MENTAL DISORDER [None]
